FAERS Safety Report 5238494-4 (Version None)
Quarter: 2007Q1

REPORT INFORMATION
  Report Type: 
  Country: None (occurrence: None)
  Receive Date: 20070215
  Receipt Date: 20070207
  Transmission Date: 20070707
  Serious: Yes (Hospitalization)
  Sender: FDA-Public Use
  Company Number: HQWYE008108FEB07

PATIENT
  Age: 33 Year
  Sex: Male

DRUGS (1)
  1. EFFEXOR [Suspect]
     Indication: GENERALISED ANXIETY DISORDER
     Dosage: 150 MG EVERY

REACTIONS (9)
  - AGGRESSION [None]
  - DRUG WITHDRAWAL SYNDROME [None]
  - ELEVATED MOOD [None]
  - EUPHORIC MOOD [None]
  - GRANDIOSITY [None]
  - IMPULSIVE BEHAVIOUR [None]
  - INSOMNIA [None]
  - IRRITABILITY [None]
  - MANIA [None]
